FAERS Safety Report 23105666 (Version 1)
Quarter: 2023Q4

REPORT INFORMATION
  Report Type: Spontaneous
  Country: US (occurrence: None)
  Receive Date: 20231023
  Receipt Date: 20231023
  Transmission Date: 20240110
  Serious: Yes (Hospitalization)
  Sender: FDA-Public Use
  Company Number: None

PATIENT
  Age: 78 Year
  Sex: Male
  Weight: 117 kg

DRUGS (1)
  1. VANCOMYCIN HYDROCHLORIDE [Suspect]
     Active Substance: VANCOMYCIN HYDROCHLORIDE
     Dosage: FREQUENCY : ONCE;?
     Route: 042
     Dates: start: 20230201, end: 20230203

REACTIONS (7)
  - Rash [None]
  - Lethargy [None]
  - Decreased appetite [None]
  - Urine abnormality [None]
  - Cellulitis [None]
  - Asthenia [None]
  - Urinary tract infection pseudomonal [None]

NARRATIVE: CASE EVENT DATE: 20230204
